FAERS Safety Report 5924859-1 (Version None)
Quarter: 2008Q4

REPORT INFORMATION
  Report Type: 
  Country: None (occurrence: None)
  Receive Date: 20081017
  Receipt Date: 20081017
  Transmission Date: 20090506
  Serious: Yes (Disabling)
  Sender: FDA-Public Use
  Company Number: None

PATIENT
  Age: 72 Year
  Sex: Female
  Weight: 76.6579 kg

DRUGS (2)
  1. METFORMIN HCL [Suspect]
     Indication: DIABETES MELLITUS
     Dosage: 1 TAB QAM, 1 TAB HS 2X A DAY PO
     Route: 048
     Dates: start: 20080801, end: 20080910
  2. METFORMIN HCL [Suspect]
     Indication: DIABETES MELLITUS
     Dosage: 1 TAB QAM, 1 TAB HS 2X A DAY PO
     Route: 048
     Dates: start: 20080909, end: 20080913

REACTIONS (4)
  - FEELING ABNORMAL [None]
  - HOT FLUSH [None]
  - MALAISE [None]
  - THERAPEUTIC RESPONSE UNEXPECTED [None]
